FAERS Safety Report 20949982 (Version 1)
Quarter: 2022Q2

REPORT INFORMATION
  Report Type: Report from Study
  Country: US (occurrence: US)
  Receive Date: 20220613
  Receipt Date: 20220613
  Transmission Date: 20220721
  Serious: No
  Sender: FDA-Public Use
  Company Number: US-ORGANON-O2205USA001843

PATIENT
  Sex: Female

DRUGS (1)
  1. IMPLANON [Suspect]
     Active Substance: ETONOGESTREL
     Dosage: 1 IMPLANT 68 MG, DOSE/FREQUENCY 1 EVERY 3 YEARS

REACTIONS (3)
  - Complication of device insertion [Unknown]
  - Wrong technique in product usage process [Unknown]
  - No adverse event [Unknown]
